FAERS Safety Report 6720493-4 (Version None)
Quarter: 2010Q2

REPORT INFORMATION
  Report Type: 
  Country: None (occurrence: None)
  Receive Date: 20100506
  Receipt Date: 20100422
  Transmission Date: 20101027
  Serious: Yes (Other)
  Sender: FDA-Public Use
  Company Number: 167-20484-09071441

PATIENT
  Sex: Female
  Weight: 136 kg

DRUGS (21)
  1. INNOHEP [Suspect]
     Indication: PROPHYLAXIS
     Dosage: SEE IMAGE
     Route: 058
     Dates: start: 20060426, end: 20060508
  2. INNOHEP [Suspect]
     Indication: PROPHYLAXIS
     Dosage: SEE IMAGE
     Route: 058
     Dates: start: 20060509, end: 20060703
  3. INNOHEP [Suspect]
     Indication: PROPHYLAXIS
     Dosage: SEE IMAGE
     Route: 058
     Dates: start: 20060704
  4. CEFADROXIL [Concomitant]
  5. METOCLOPRAMIDE (METOCLOPRAMIDE) [Concomitant]
  6. ACETAMINOPHEN [Concomitant]
  7. CYCLIZINE (CYCLIZINE) [Concomitant]
  8. FOLIC ACID [Concomitant]
  9. THIAMINE (THIAMINE) [Concomitant]
  10. STEMETIL (PROCHLORPERAZINE EDISYLATE) [Concomitant]
  11. FERROUS SULFATE TAB [Concomitant]
  12. LACTUOSE (LACTULOSE) [Concomitant]
  13. HYDROXOCOBALAMIN (HYDROXOCOBALAMIN) [Concomitant]
  14. VANCOMYCIN [Concomitant]
  15. BETAMETHASONE [Concomitant]
  16. MORPHINE [Concomitant]
  17. SYNTOMETRINE (OXYTOCIN, ERGOMETRINE) (AMPOULES) [Concomitant]
  18. CODEINE PHOSPHATE (CODEINE PHOSPHATE) [Concomitant]
  19. GAVISCON [Concomitant]
  20. RANTIDINE (RANITIDINE HYDROCHLORIDE) [Concomitant]
  21. BLOOD (BLOOD, WHOLE) [Concomitant]

REACTIONS (2)
  - ANAEMIA [None]
  - DRUG EXPOSURE DURING PREGNANCY [None]
